FAERS Safety Report 6551593-X (Version None)
Quarter: 2010Q1

REPORT INFORMATION
  Report Type: 
  Country: None (occurrence: None)
  Receive Date: 20100126
  Receipt Date: 20100114
  Transmission Date: 20100710
  Serious: Yes (Death, Life-Threatening)
  Sender: FDA-Public Use
  Company Number: GB-WYE-G03423009

PATIENT
  Age: 68 Year
  Sex: Male
  Weight: 90 kg

DRUGS (11)
  1. EFFEXOR [Suspect]
     Dosage: 150 MG (FREQUENCY UNKNOWN)
     Route: 048
     Dates: start: 20090226, end: 20090305
  2. CETIRIZINE HCL [Concomitant]
     Route: 048
  3. DIAZEPAM [Concomitant]
  4. MOMETASONE FUROATE [Concomitant]
     Route: 045
  5. CODEINE [Suspect]
     Dosage: OVERDOSE AMOUNT UNKNOWN
     Dates: start: 20090301, end: 20090301
  6. SIMVASTATIN [Concomitant]
  7. ZOPICLONE [Concomitant]
  8. ACETAMINOPHEN [Suspect]
     Dosage: OVERDOSE AMOUNT UNKNOWN
     Dates: start: 20090301, end: 20090301
  9. PAROXETINE HCL [Suspect]
     Dosage: OVERDOSE AMOUNT UNKNOWN
     Dates: start: 20090301, end: 20090301
  10. CANDESARTAN CILEXETIL [Concomitant]
  11. OMEPRAZOLE [Concomitant]
     Route: 048

REACTIONS (2)
  - INTENTIONAL OVERDOSE [None]
  - THROMBOCYTOPENIA [None]
